FAERS Safety Report 24229963 (Version 1)
Quarter: 2024Q3

REPORT INFORMATION
  Report Type: Report from Study
  Country: US (occurrence: US)
  Receive Date: 20240820
  Receipt Date: 20240820
  Transmission Date: 20241017
  Serious: No
  Sender: SANDOZ
  Company Number: US-SANDOZ-SDZ2024US015406

PATIENT
  Sex: Male

DRUGS (2)
  1. OMNITROPE [Suspect]
     Active Substance: SOMATROPIN
     Indication: Hypopituitarism
     Dosage: 3 MG 6 DAYS/WEEK
     Route: 058
     Dates: start: 20240209
  2. OMNITROPE [Suspect]
     Active Substance: SOMATROPIN
     Indication: Hypopituitarism
     Dosage: 3 MG 6 DAYS/WEEK
     Route: 058
     Dates: start: 20240209

REACTIONS (2)
  - Device difficult to use [Unknown]
  - Device delivery system issue [Unknown]
